FAERS Safety Report 21723837 (Version 1)
Quarter: 2022Q4

REPORT INFORMATION
  Report Type: Spontaneous
  Country: US (occurrence: US)
  Receive Date: 20221213
  Receipt Date: 20221213
  Transmission Date: 20230112
  Serious: No
  Sender: FDA-Public Use
  Company Number: US-PFIZER INC-202201359081

PATIENT
  Age: 64 Year
  Sex: Female
  Weight: 70.31 kg

DRUGS (4)
  1. PAXLOVID [Suspect]
     Active Substance: NIRMATRELVIR\RITONAVIR
     Indication: COVID-19 treatment
     Dosage: [PF-07321332 300 MG]/[RITONAVIR 100 MG]; 2X/DAY
     Route: 048
     Dates: start: 20221128
  2. ATORVASTATIN [Concomitant]
     Active Substance: ATORVASTATIN
     Indication: Blood cholesterol
     Dosage: UNK
  3. ACETAMINOPHEN, DEXTROMETHORPHAN HBR + DOXYLAMINE SUCCINATE [Concomitant]
     Indication: Sleep disorder
     Dosage: UNK (DOSE IS 2 CAPSULES, BUT SHE ONLY TOOK 1/2 DOSE OR 1 CAPSULE.)
  4. ACETAMINOPHEN, DEXTROMETHORPHAN HBR + DOXYLAMINE SUCCINATE [Concomitant]
     Indication: Cough

REACTIONS (1)
  - Heart rate increased [Recovering/Resolving]

NARRATIVE: CASE EVENT DATE: 20221202
